FAERS Safety Report 19114789 (Version 1)
Quarter: 2021Q2

REPORT INFORMATION
  Report Type: Other
  Country: JP (occurrence: JP)
  Receive Date: 20210409
  Receipt Date: 20210409
  Transmission Date: 20210717
  Serious: Yes (Death, Life-Threatening, Other)
  Sender: FDA-Public Use
  Company Number: JP-ROCHE-2777686

PATIENT
  Age: 65 Year
  Sex: Female
  Weight: 46 kg

DRUGS (1)
  1. ATEZOLIZUMAB. [Suspect]
     Active Substance: ATEZOLIZUMAB
     Indication: NON-SMALL CELL LUNG CANCER
     Dosage: MOST RECENT DOSE PRIOR TO AE 19/FEB/2021
     Route: 041
     Dates: start: 20210210

REACTIONS (5)
  - Bronchial obstruction [Unknown]
  - Lung adenocarcinoma [Fatal]
  - Pericarditis [Recovering/Resolving]
  - Cardiac tamponade [Unknown]
  - Renal impairment [Unknown]

NARRATIVE: CASE EVENT DATE: 20210215
